FAERS Safety Report 6670894-8 (Version None)
Quarter: 2010Q2

REPORT INFORMATION
  Report Type: 
  Country: None (occurrence: None)
  Receive Date: 20100406
  Receipt Date: 20100406
  Transmission Date: 20101027
  Serious: Yes (Hospitalization)
  Sender: FDA-Public Use
  Company Number: None

PATIENT
  Age: 38 Year
  Sex: Male

DRUGS (4)
  1. MESALAMINE [Suspect]
     Indication: COLITIS ULCERATIVE
     Dosage: 1200 MG QID PO
     Route: 048
     Dates: start: 20080606, end: 20080707
  2. MESALAMINE [Suspect]
     Indication: COLITIS ULCERATIVE
     Dosage: 4 GM DAILY RECTAL
     Route: 054
     Dates: start: 20080606, end: 20080707
  3. PREDNISONE [Concomitant]
  4. PERCOCET [Concomitant]

REACTIONS (3)
  - ABDOMINAL PAIN [None]
  - CONDITION AGGRAVATED [None]
  - DIARRHOEA HAEMORRHAGIC [None]
